FAERS Safety Report 6081023-6 (Version None)
Quarter: 2009Q1

REPORT INFORMATION
  Report Type: 
  Country: None (occurrence: None)
  Receive Date: 20090217
  Receipt Date: 20090204
  Transmission Date: 20090719
  Serious: Yes (Death, Other)
  Sender: FDA-Public Use
  Company Number: ES-B.I. PHARMACEUTICALS,INC./RIDGEFIELD-2009-DE-01236GD

PATIENT

DRUGS (2)
  1. NEVIRAPINE [Suspect]
     Indication: HIV INFECTION
  2. ANTIVIRALS FOR SYSTEMIC USE [Suspect]
     Indication: HIV INFECTION

REACTIONS (2)
  - DEATH [None]
  - DRUG TOXICITY [None]
